FAERS Safety Report 19182915 (Version 2)
Quarter: 2021Q2

REPORT INFORMATION
  Report Type: Other
  Country: US (occurrence: US)
  Receive Date: 20210427
  Receipt Date: 20210506
  Transmission Date: 20210717
  Serious: Yes (Other)
  Sender: FDA-Public Use
  Company Number: US-ROCHE-2816328

PATIENT
  Age: 56 Year
  Sex: Male
  Weight: 74.91 kg

DRUGS (10)
  1. JANUVIA [Suspect]
     Active Substance: SITAGLIPTIN PHOSPHATE
     Indication: TYPE 2 DIABETES MELLITUS
     Route: 048
  2. VITAMIN D [Concomitant]
     Active Substance: VITAMIN D NOS
  3. OCREVUS [Suspect]
     Active Substance: OCRELIZUMAB
     Indication: SECONDARY PROGRESSIVE MULTIPLE SCLEROSIS
     Route: 042
     Dates: start: 202006
  4. AMLODIPINE [Concomitant]
     Active Substance: AMLODIPINE BESYLATE
     Indication: HYPERTENSION
     Route: 048
  5. ASPIRIN 81 [Concomitant]
     Active Substance: ASPIRIN
     Route: 048
  6. ATORVASTATIN [Concomitant]
     Active Substance: ATORVASTATIN
     Indication: BLOOD CHOLESTEROL INCREASED
     Route: 048
  7. KLONOPIN [Suspect]
     Active Substance: CLONAZEPAM
     Indication: MUSCLE SPASMS
     Dosage: AT BEDTIME
     Route: 048
  8. METFORMIN [Concomitant]
     Active Substance: METFORMIN HYDROCHLORIDE
     Indication: TYPE 2 DIABETES MELLITUS
     Route: 048
  9. BENAZEPRIL [Concomitant]
     Active Substance: BENAZEPRIL HYDROCHLORIDE
     Indication: HYPERTENSION
     Route: 048
  10. BACLOFEN. [Concomitant]
     Active Substance: BACLOFEN

REACTIONS (4)
  - Off label use [Unknown]
  - Walking aid user [Unknown]
  - COVID-19 [Recovered/Resolved]
  - Hemiparesis [Unknown]

NARRATIVE: CASE EVENT DATE: 20210226
